FAERS Safety Report 7354211-6 (Version None)
Quarter: 2011Q1

REPORT INFORMATION
  Report Type: 
  Country: None (occurrence: None)
  Receive Date: 20110316
  Receipt Date: 20110310
  Transmission Date: 20110831
  Serious: No
  Sender: FDA-Public Use
  Company Number: US-BIOGENIDEC-2010BI044356

PATIENT
  Age: 62 Year
  Sex: Female

DRUGS (17)
  1. ZOLOFT [Concomitant]
  2. THYROID TAB [Concomitant]
  3. TEGRETOL [Concomitant]
  4. TYSABRI [Suspect]
     Route: 042
     Dates: start: 20110101
  5. ALPRAZOLAM [Concomitant]
  6. FLOVENT [Concomitant]
  7. NEURONTIN [Concomitant]
  8. TEGRETOL [Concomitant]
  9. TYSABRI [Suspect]
     Indication: MULTIPLE SCLEROSIS
     Route: 042
     Dates: start: 20071003, end: 20101119
  10. SIMVASTATIN [Concomitant]
  11. ASPIRIN [Concomitant]
  12. MACROBID [Concomitant]
  13. CALCIUM [Concomitant]
  14. NORVASC [Concomitant]
  15. ZOLOFT [Concomitant]
  16. PREMARIN [Concomitant]
  17. SAVELLA [Concomitant]

REACTIONS (3)
  - MULTIPLE SCLEROSIS [None]
  - COORDINATION ABNORMAL [None]
  - HEADACHE [None]
